FAERS Safety Report 17727370 (Version 1)
Quarter: 2020Q2

REPORT INFORMATION
  Report Type: Report from Study
  Country: UA (occurrence: UA)
  Receive Date: 20200430
  Receipt Date: 20200430
  Transmission Date: 20200714
  Serious: Yes (Hospitalization, Other)
  Sender: FDA-Public Use
  Company Number: UA-SA-2020SA049856

PATIENT
  Age: 69 Year
  Sex: Male

DRUGS (39)
  1. DIOSMIN [Concomitant]
     Active Substance: DIOSMIN
     Indication: PERIPHERAL VENOUS DISEASE
     Dosage: 500 MG, BID
     Dates: start: 20191218
  2. DEXAMETASON [DEXAMETHASONE] [Concomitant]
     Active Substance: DEXAMETHASONE
     Indication: PREMEDICATION
     Dosage: 8 MG, QD
     Dates: start: 20191227, end: 20191227
  3. STEROFUNDIN ISO [Concomitant]
     Dosage: 500 ML, QD
     Dates: start: 20200117, end: 20200117
  4. NACL [Concomitant]
     Active Substance: SODIUM CHLORIDE
     Dosage: 400 ML, QD
     Dates: start: 20200117, end: 20200117
  5. GLUCOSE [Concomitant]
     Active Substance: DEXTROSE
     Dosage: 600 ML, QD
     Dates: start: 20200117, end: 20200117
  6. REOSORBILACT [Concomitant]
     Active Substance: CALCIUM CHLORIDE\MAGNESIUM CHLORIDE\POTASSIUM CHLORIDE\SODIUM CHLORIDE\SODIUM LACTATE\SORBITOL
     Indication: JAUNDICE
     Dosage: 200.0
     Dates: start: 20200128, end: 20200201
  7. GLUCOSE [Concomitant]
     Active Substance: DEXTROSE
     Indication: VEHICLE SOLUTION USE
     Dosage: 600 ML, QD
     Dates: start: 20191227, end: 20191227
  8. OXALIPLATIN. [Suspect]
     Active Substance: OXALIPLATIN
     Indication: ADENOCARCINOMA GASTRIC
     Dosage: 240 MG
     Route: 042
     Dates: start: 20191227, end: 20200125
  9. DEXAMETASON [DEXAMETHASONE] [Concomitant]
     Active Substance: DEXAMETHASONE
     Dosage: 8 MG, QD
     Dates: start: 20200118, end: 20200118
  10. ONDANSETRON [Concomitant]
     Active Substance: ONDANSETRON
     Indication: PREMEDICATION
     Dosage: 8 MG, QD
     Dates: start: 20191227, end: 20191227
  11. ONDANSETRON [Concomitant]
     Active Substance: ONDANSETRON
     Dosage: 8 MG, QD
     Dates: start: 20200117, end: 20200117
  12. ONDANSETRON [Concomitant]
     Active Substance: ONDANSETRON
     Dosage: 8 MG, QD
     Dates: start: 20200118, end: 20200118
  13. CLEMASTINE [Concomitant]
     Active Substance: CLEMASTINE
     Dosage: 8 ML, QD
     Dates: start: 20200117, end: 20200117
  14. NACL [Concomitant]
     Active Substance: SODIUM CHLORIDE
     Indication: VEHICLE SOLUTION USE
     Dosage: 400 ML, QD
     Dates: start: 20191227, end: 20191227
  15. EUPHYLLINE [AMINOPHYLLINE] [Concomitant]
     Indication: JAUNDICE
     Dosage: UNK UNK, QD
     Dates: start: 20200128, end: 20200201
  16. BISOPROLOLUM [Concomitant]
     Active Substance: BISOPROLOL FUMARATE
     Indication: MYOCARDIAL ISCHAEMIA
     Dosage: 5 MG, QD
     Dates: start: 20191218
  17. FERROUS SULFATE. [Concomitant]
     Active Substance: FERROUS SULFATE
     Indication: ANAEMIA
     Dosage: 200 UG, QD
     Dates: start: 20191227, end: 20191227
  18. DEXAMETASON [DEXAMETHASONE] [Concomitant]
     Active Substance: DEXAMETHASONE
     Indication: THERAPEUTIC PROCEDURE
     Dosage: 8 MG, QD
     Dates: start: 20191228, end: 20191228
  19. DEXAMETASON [DEXAMETHASONE] [Concomitant]
     Active Substance: DEXAMETHASONE
     Dosage: 8 MG, QD
     Dates: start: 20200117, end: 20200117
  20. ONDANSETRON [Concomitant]
     Active Substance: ONDANSETRON
     Indication: THERAPEUTIC PROCEDURE
     Dosage: 16 MG, QD
     Dates: start: 20191228, end: 20191228
  21. GLUCOSE [Concomitant]
     Active Substance: DEXTROSE
     Dosage: 400.0
     Dates: start: 20200128, end: 20200128
  22. RIBOXIN [INOSINE] [Concomitant]
     Indication: JAUNDICE
     Dosage: UNK
     Dates: start: 20200128, end: 20200201
  23. ADEMETIONINE [Concomitant]
     Active Substance: ADEMETIONINE
     Indication: JAUNDICE
     Dosage: UNK
     Dates: start: 20200128, end: 20200201
  24. PANTOPRAZOL [PANTOPRAZOLE] [Concomitant]
     Active Substance: PANTOPRAZOLE
     Indication: PREMEDICATION
     Dosage: 40 MG, QD
     Dates: start: 20191227, end: 20191227
  25. STEROFUNDIN ISO [Concomitant]
     Indication: THERAPEUTIC PROCEDURE
     Dosage: 500 ML, QD
     Dates: start: 20191228, end: 20191228
  26. FERROUS SULFATE. [Concomitant]
     Active Substance: FERROUS SULFATE
     Dosage: 200 UG, QD
     Dates: start: 20191228, end: 20191228
  27. PANTOPRAZOL [PANTOPRAZOLE] [Concomitant]
     Active Substance: PANTOPRAZOLE
     Indication: THERAPEUTIC PROCEDURE
     Dosage: 40 MG, QD
     Dates: start: 20191228, end: 20191228
  28. PANTOPRAZOL [PANTOPRAZOLE] [Concomitant]
     Active Substance: PANTOPRAZOLE
     Dosage: 40 MG, QD
     Dates: start: 20200118, end: 20200118
  29. GLUCOSE [Concomitant]
     Active Substance: DEXTROSE
     Indication: JAUNDICE
     Dosage: 600 ML, QD
     Dates: start: 20200117, end: 20200117
  30. PREGABALIN. [Concomitant]
     Active Substance: PREGABALIN
     Indication: NEUROPATHY PERIPHERAL
     Dosage: 150 MG, QD
     Dates: start: 20200117
  31. RINGER^S SOLUTION [CALCIUM CHLORIDE;POTASSIUM CHLORIDE;SODIUM CHLORIDE [Concomitant]
     Indication: JAUNDICE
     Dosage: 400.0
     Dates: start: 20200128, end: 20200201
  32. L-ORNITHINE L-ASPARTATE [Concomitant]
     Active Substance: ORNITHINE ASPARTATE
     Indication: JAUNDICE
     Dosage: UNK UNK, QD
     Dates: start: 20200128, end: 20200201
  33. CAPECITABINE. [Suspect]
     Active Substance: CAPECITABINE
     Indication: ADENOCARCINOMA GASTRIC
     Dosage: 3500 MG
     Route: 048
     Dates: start: 20191227, end: 20200125
  34. RIVAROXABAN [Concomitant]
     Active Substance: RIVAROXABAN
     Indication: ATRIAL FIBRILLATION
     Dosage: 20 MG, QD
     Dates: start: 20191218
  35. PANTOPRAZOL [PANTOPRAZOLE] [Concomitant]
     Active Substance: PANTOPRAZOLE
     Dosage: 40 MG, QD
     Dates: start: 20200117, end: 20200117
  36. CLEMASTINE [Concomitant]
     Active Substance: CLEMASTINE
     Indication: PREMEDICATION
     Dosage: 8 ML, QD
     Dates: start: 20191227, end: 20191227
  37. STEROFUNDIN ISO [Concomitant]
     Indication: ADENOCARCINOMA GASTRIC
     Dosage: 500 ML, QD
     Dates: start: 20191227, end: 20191227
  38. NACL [Concomitant]
     Active Substance: SODIUM CHLORIDE
     Dosage: 400 ML, QD
     Dates: start: 20191228, end: 20191228
  39. PYRIDOXINE;THIAMINE;VITAMIN B12 NOS [Concomitant]
     Indication: NEUROPATHY PERIPHERAL
     Dosage: 100 UI, 200 UI AND 300 UI
     Dates: start: 20200121

REACTIONS (1)
  - Jaundice cholestatic [Recovered/Resolved]

NARRATIVE: CASE EVENT DATE: 20200125
